FAERS Safety Report 20096960 (Version 3)
Quarter: 2022Q2

REPORT INFORMATION
  Report Type: Spontaneous
  Country: US (occurrence: US)
  Receive Date: 20211122
  Receipt Date: 20220608
  Transmission Date: 20220721
  Serious: No
  Sender: FDA-Public Use
  Company Number: US-PFIZER INC-202101255176

PATIENT
  Age: 69 Year
  Sex: Female
  Weight: 63.5 kg

DRUGS (2)
  1. IBRANCE [Suspect]
     Active Substance: PALBOCICLIB
     Indication: Breast cancer female
     Dosage: 125 MG
  2. IBRANCE [Suspect]
     Active Substance: PALBOCICLIB
     Dosage: 125 MG, DAILY
     Dates: start: 202109

REACTIONS (5)
  - Off label use [Unknown]
  - Wrong technique in product usage process [Recovered/Resolved]
  - Dysphagia [Recovering/Resolving]
  - White blood cell count abnormal [Unknown]
  - Alopecia [Unknown]

NARRATIVE: CASE EVENT DATE: 20210901
